FAERS Safety Report 11891339 (Version 3)
Quarter: 2016Q1

REPORT INFORMATION
  Report Type: Report from Study
  Country: US (occurrence: US)
  Receive Date: 20160106
  Receipt Date: 20160210
  Transmission Date: 20160526
  Serious: No
  Sender: FDA-Public Use
  Company Number: PHEH2016US000499

PATIENT
  Age: 34 Year
  Sex: Female
  Weight: 100.68 kg

DRUGS (2)
  1. GILENYA [Suspect]
     Active Substance: FINGOLIMOD HYDROCHLORIDE
     Indication: MULTIPLE SCLEROSIS
     Dosage: 0.5 MG, QD
     Route: 048
  2. GILENYA [Suspect]
     Active Substance: FINGOLIMOD HYDROCHLORIDE
     Dosage: 0.5 MG, QD
     Route: 048
     Dates: start: 20150521

REACTIONS (5)
  - Hepatic enzyme increased [Unknown]
  - Stress [Unknown]
  - Malaise [Unknown]
  - Multiple sclerosis relapse [Unknown]
  - Paraesthesia [Unknown]

NARRATIVE: CASE EVENT DATE: 20160105
